FAERS Safety Report 8290775-6 (Version None)
Quarter: 2012Q2

REPORT INFORMATION
  Report Type: 
  Country: None (occurrence: None)
  Receive Date: 20120417
  Receipt Date: 20120410
  Transmission Date: 20120825
  Serious: No
  Sender: FDA-Public Use
  Company Number: US-B.I. PHARMACEUTICALS,INC./RIDGEFIELD-2012-BP-06709BP

PATIENT
  Sex: Female

DRUGS (2)
  1. ALIGN [Concomitant]
     Route: 048
  2. ZANTAC [Suspect]
     Indication: GASTROOESOPHAGEAL REFLUX DISEASE
     Dosage: 300 MG
     Route: 048
     Dates: start: 20120329, end: 20120404

REACTIONS (3)
  - INFLUENZA [None]
  - EYELID OEDEMA [None]
  - RASH MACULAR [None]
